FAERS Safety Report 9531788 (Version 2)
Quarter: 2013Q4

REPORT INFORMATION
  Report Type: Spontaneous
  Country: US (occurrence: US)
  Receive Date: 20130918
  Receipt Date: 20131001
  Transmission Date: 20140711
  Serious: Yes (Other)
  Sender: FDA-Public Use
  Company Number: US-PFIZER INC-2013267181

PATIENT
  Age: 59 Year
  Sex: Female
  Weight: 72.56 kg

DRUGS (6)
  1. SERTRALINE HCL [Suspect]
     Indication: MAJOR DEPRESSION
     Dosage: 100 MG, 2X/DAY
     Route: 048
     Dates: start: 20120709, end: 201212
  2. SERTRALINE HCL [Suspect]
     Indication: DEPRESSION
  3. PROTONIX [Concomitant]
     Dosage: UNK
  4. GLUCOTROL [Concomitant]
     Dosage: UNK
  5. PREMARIN [Concomitant]
     Dosage: UNK
  6. LIPITOR [Concomitant]
     Dosage: UNK

REACTIONS (2)
  - Depression [Unknown]
  - Drug ineffective [Unknown]
